FAERS Safety Report 24641481 (Version 1)
Quarter: 2024Q4

REPORT INFORMATION
  Report Type: Spontaneous
  Country: US (occurrence: None)
  Receive Date: 20241119
  Receipt Date: 20241119
  Transmission Date: 20250115
  Serious: Yes (Hospitalization)
  Sender: Public
  Company Number: None

PATIENT

DRUGS (1)
  1. WINREVAIR [Suspect]
     Active Substance: SOTATERCEPT-CSRK
     Dosage: OTHER FREQUENCY : EVERY3WEEKS;?
     Route: 042
     Dates: start: 202409

REACTIONS (2)
  - Peripheral swelling [None]
  - Dyspnoea [None]
